FAERS Safety Report 9924674 (Version 1)
Quarter: 2014Q1

REPORT INFORMATION
  Report Type: Spontaneous
  Country: ES (occurrence: ES)
  Receive Date: 20140226
  Receipt Date: 20140226
  Transmission Date: 20141002
  Serious: Yes (Other)
  Sender: FDA-Public Use
  Company Number: ES-JNJFOC-20140213024

PATIENT
  Age: 15 Year
  Sex: Male

DRUGS (5)
  1. CONCERTA [Suspect]
     Indication: ATTENTION DEFICIT/HYPERACTIVITY DISORDER
     Route: 048
     Dates: start: 20121107
  2. PULMICORT TURBUHALER [Concomitant]
     Indication: ASTHMA
     Route: 055
  3. RISPERIDONE [Concomitant]
     Indication: PRODUCT USED FOR UNKNOWN INDICATION
     Route: 048
  4. AVAMYS [Concomitant]
     Indication: PRODUCT USED FOR UNKNOWN INDICATION
     Route: 045
  5. TERBASMIN TURBUHALER [Concomitant]
     Indication: ASTHMA
     Route: 055

REACTIONS (1)
  - Haematuria [Not Recovered/Not Resolved]
